FAERS Safety Report 13793810 (Version 1)
Quarter: 2017Q3

REPORT INFORMATION
  Report Type: Spontaneous
  Country: US (occurrence: US)
  Receive Date: 20170726
  Receipt Date: 20170726
  Transmission Date: 20171127
  Serious: Yes (Hospitalization, Other)
  Sender: FDA-Public Use
  Company Number: US-AUROBINDO-AUR-APL-2017-37544

PATIENT
  Age: 39 Year
  Sex: Male

DRUGS (2)
  1. TELMISARTAN+HYDROCHLOROTHIAZIDE [Suspect]
     Active Substance: HYDROCHLOROTHIAZIDE\TELMISARTAN
     Indication: HYPERTENSION
     Route: 065
  2. HYDROCHLOROTHIAZIDE. [Suspect]
     Active Substance: HYDROCHLOROTHIAZIDE
     Indication: HYPERTENSION
     Route: 065

REACTIONS (7)
  - Rash pruritic [Unknown]
  - Tenderness [Unknown]
  - Papule [Unknown]
  - Skin depigmentation [Unknown]
  - Lichen planus [Unknown]
  - Rash generalised [Unknown]
  - Burning sensation [Unknown]
